FAERS Safety Report 18329638 (Version 1)
Quarter: 2020Q3

REPORT INFORMATION
  Report Type: Spontaneous
  Country: US (occurrence: US)
  Receive Date: 20200930
  Receipt Date: 20200930
  Transmission Date: 20201103
  Serious: No
  Sender: FDA-Public Use
  Company Number: US-INDIVIOR US-INDV-125232-2020

PATIENT
  Sex: Female

DRUGS (1)
  1. SUBLOCADE [Suspect]
     Active Substance: BUPRENORPHINE
     Indication: DRUG DEPENDENCE
     Dosage: UNK, QMO
     Route: 065

REACTIONS (3)
  - Drug abuse [Not Recovered/Not Resolved]
  - Drug detoxification [Unknown]
  - Drug level fluctuating [Not Recovered/Not Resolved]

NARRATIVE: CASE EVENT DATE: 20200427
